FAERS Safety Report 19904036 (Version 2)
Quarter: 2022Q2

REPORT INFORMATION
  Report Type: Spontaneous
  Country: FR (occurrence: FR)
  Receive Date: 20211001
  Receipt Date: 20220505
  Transmission Date: 20220721
  Serious: Yes (Death, Life-Threatening, Other)
  Sender: FDA-Public Use
  Company Number: FR-AMGEN-FRASP2021151020

PATIENT

DRUGS (4)
  1. PANITUMUMAB [Suspect]
     Active Substance: PANITUMUMAB
     Indication: Colorectal cancer metastatic
     Dosage: UNK
     Route: 065
  2. BEVACIZUMAB [Suspect]
     Active Substance: BEVACIZUMAB
     Indication: Colorectal cancer metastatic
     Dosage: UNK
     Route: 065
  3. DABRAFENIB [Suspect]
     Active Substance: DABRAFENIB
     Indication: Colorectal cancer metastatic
     Dosage: UNK
     Route: 065
  4. TRAMETINIB [Suspect]
     Active Substance: TRAMETINIB
     Indication: Colorectal cancer metastatic
     Dosage: UNK
     Route: 065

REACTIONS (27)
  - Nausea [Unknown]
  - Death [Fatal]
  - Vomiting [Unknown]
  - Dermatitis acneiform [Unknown]
  - Asthenia [Unknown]
  - Cardiotoxicity [Unknown]
  - Aspartate aminotransferase abnormal [Unknown]
  - Alanine aminotransferase increased [Unknown]
  - Blood creatinine increased [Unknown]
  - Adverse event [Unknown]
  - Anaemia [Unknown]
  - Colorectal cancer metastatic [Unknown]
  - Thrombocytopenia [Unknown]
  - Neutropenia [Unknown]
  - Renal tubular necrosis [Unknown]
  - Cardiac failure [Unknown]
  - Diarrhoea [Unknown]
  - Abdominal pain [Unknown]
  - Stomatitis [Unknown]
  - Palmar-plantar erythrodysaesthesia syndrome [Unknown]
  - Alopecia [Unknown]
  - Musculoskeletal pain [Unknown]
  - Arthralgia [Unknown]
  - Eye disorder [Unknown]
  - Melanocytic naevus [Unknown]
  - Therapy partial responder [Unknown]
  - Adverse drug reaction [Unknown]
